FAERS Safety Report 16747364 (Version 1)
Quarter: 2019Q3

REPORT INFORMATION
  Report Type: Spontaneous
  Country: JP (occurrence: JP)
  Receive Date: 20190827
  Receipt Date: 20190827
  Transmission Date: 20191005
  Serious: Yes (Other)
  Sender: FDA-Public Use
  Company Number: JP-JNJFOC-20190827508

PATIENT
  Sex: Female

DRUGS (5)
  1. BISOPROLOL [Concomitant]
     Active Substance: BISOPROLOL
  2. TERNELIN [Concomitant]
     Active Substance: TIZANIDINE
  3. HERBAL POLLEN NOS [Concomitant]
  4. RIVAROXABAN [Suspect]
     Active Substance: RIVAROXABAN
     Indication: ATRIAL FIBRILLATION
     Route: 048
  5. ZETIA [Concomitant]
     Active Substance: EZETIMIBE

REACTIONS (4)
  - Insomnia [Unknown]
  - Alopecia [Unknown]
  - Back pain [Unknown]
  - Uterine cancer [Unknown]
